FAERS Safety Report 4340449-9 (Version None)
Quarter: 2004Q2

REPORT INFORMATION
  Report Type: 
  Country: None (occurrence: None)
  Receive Date: 20040414
  Receipt Date: 20040402
  Transmission Date: 20050107
  Serious: Yes (Hospitalization)
  Sender: FDA-Public Use
  Company Number: 163-20785-04030334

PATIENT
  Age: 48 Year
  Sex: Female

DRUGS (1)
  1. THALOMID [Suspect]
     Indication: THYROID GLAND CANCER
     Dosage: 100 MG, DAILY, ORAL
     Route: 048
     Dates: start: 20031010

REACTIONS (2)
  - MALIGNANT NEOPLASM PROGRESSION [None]
  - THYROID GLAND CANCER [None]
